FAERS Safety Report 19732453 (Version 1)
Quarter: 2021Q3

REPORT INFORMATION
  Report Type: Spontaneous
  Country: US (occurrence: US)
  Receive Date: 20210822
  Receipt Date: 20210822
  Transmission Date: 20211014
  Serious: No
  Sender: FDA-Public Use
  Company Number: US-INTERSECT ENT, INC.-2115469

PATIENT
  Age: 59 Year
  Sex: Male

DRUGS (1)
  1. SINUVA [Suspect]
     Active Substance: MOMETASONE FUROATE
     Indication: NASAL POLYPS
     Route: 006
     Dates: start: 20210226, end: 20210519

REACTIONS (2)
  - Choking sensation [Recovered/Resolved]
  - Device dislocation [Recovered/Resolved]

NARRATIVE: CASE EVENT DATE: 20210512
